FAERS Safety Report 5953739-0 (Version None)
Quarter: 2008Q4

REPORT INFORMATION
  Report Type: 
  Country: None (occurrence: None)
  Receive Date: 20081031
  Receipt Date: 20080617
  Transmission Date: 20090506
  Serious: No
  Sender: FDA-Public Use
  Company Number: 2008PV035791

PATIENT
  Age: 65 Year
  Sex: Female

DRUGS (8)
  1. SYMLIN [Suspect]
     Indication: TYPE 2 DIABETES MELLITUS
     Dosage: 60 MCG; BID; SC
     Route: 058
     Dates: start: 20080611, end: 20080617
  2. SYMLIN [Suspect]
     Indication: TYPE 2 DIABETES MELLITUS
     Dosage: 120 MCG; TID; SC
     Route: 058
     Dates: start: 20080617
  3. METFORMIN HCL [Concomitant]
  4. GLUCOVANCE [Concomitant]
  5. HUMULIN R [Concomitant]
  6. HUMALOG [Concomitant]
  7. BYETTA [Concomitant]
  8. GLYBURIDE [Concomitant]

REACTIONS (3)
  - BLOOD GLUCOSE DECREASED [None]
  - BLOOD GLUCOSE INCREASED [None]
  - NAUSEA [None]
